FAERS Safety Report 13640488 (Version 2)
Quarter: 2017Q2

REPORT INFORMATION
  Report Type: Spontaneous
  Country: HR (occurrence: HR)
  Receive Date: 20170611
  Receipt Date: 20170612
  Transmission Date: 20170830
  Serious: Yes (Congenital Anomaly, Other)
  Sender: FDA-Public Use
  Company Number: HR-UNICHEM LABORATORIES LIMITED-UCM201706-000166

PATIENT
  Sex: Male

DRUGS (3)
  1. CARBAMAZEPINE. [Suspect]
     Active Substance: CARBAMAZEPINE
  2. PHENYTOIN. [Suspect]
     Active Substance: PHENYTOIN
  3. TOPIRAMATE. [Suspect]
     Active Substance: TOPIRAMATE

REACTIONS (4)
  - Foetal exposure during pregnancy [Unknown]
  - Dysmorphism [Not Recovered/Not Resolved]
  - Foetal growth restriction [Not Recovered/Not Resolved]
  - Body height below normal [Unknown]
